FAERS Safety Report 4782369-1 (Version None)
Quarter: 2005Q3

REPORT INFORMATION
  Report Type: 
  Country: None (occurrence: None)
  Receive Date: 20050927
  Receipt Date: 20050906
  Transmission Date: 20060218
  Serious: Yes (Hospitalization)
  Sender: FDA-Public Use
  Company Number: WAES 0507GBR00062

PATIENT
  Age: 61 Year
  Sex: Male

DRUGS (12)
  1. ZOCOR [Suspect]
     Indication: HYPERCHOLESTEROLAEMIA
     Dosage: 40 MG/DAILY
     Dates: start: 20050519, end: 20050701
  2. ZOCOR [Concomitant]
  3. ACETAMINOPHEN AND CODEINE PHOSPHATE [Concomitant]
  4. AMILORIDE HYDROCHLORIDE (+) FUROSEMIDE [Concomitant]
  5. AMLODIPINE BESYLATE [Concomitant]
  6. ASPIRIN [Concomitant]
  7. CLOPIDOGREL BISULFATE [Concomitant]
  8. DALTEPARIN SODIUM [Concomitant]
  9. IPRATROPIUM BROMIDE [Concomitant]
  10. ISOSORBIDE MONONITRATE [Concomitant]
  11. LISINOPRIL [Concomitant]
  12. NITROGLYCERIN [Concomitant]

REACTIONS (3)
  - CELLULITIS [None]
  - CHEST PAIN [None]
  - RASH [None]
